FAERS Safety Report 24330156 (Version 2)
Quarter: 2024Q4

REPORT INFORMATION
  Report Type: Report from Study
  Country: US (occurrence: US)
  Receive Date: 20240917
  Receipt Date: 20241016
  Transmission Date: 20250115
  Serious: Yes (Death, Other)
  Sender: ALEXION PHARMACEUTICALS
  Company Number: 2024A211913

PATIENT

DRUGS (1)
  1. CALQUENCE [Suspect]
     Active Substance: ACALABRUTINIB
     Indication: Chronic lymphocytic leukaemia (in remission)
     Dosage: 100 MILLIGRAM, BID

REACTIONS (1)
  - Death [Fatal]
